FAERS Safety Report 7741149-5 (Version None)
Quarter: 2011Q3

REPORT INFORMATION
  Report Type: 
  Country: None (occurrence: None)
  Receive Date: 20110909
  Receipt Date: 20110830
  Transmission Date: 20111222
  Serious: Yes (Hospitalization)
  Sender: FDA-Public Use
  Company Number: US-ACTELION-A-NJ2010-38641

PATIENT

DRUGS (2)
  1. TRACLEER [Suspect]
     Indication: PULMONARY ARTERIAL HYPERTENSION
     Dosage: UNK
     Route: 048
     Dates: start: 20100108
  2. COUMADIN [Concomitant]

REACTIONS (5)
  - PLEURAL EFFUSION [None]
  - LEG AMPUTATION [None]
  - INFECTION [None]
  - CARDIAC FAILURE CONGESTIVE [None]
  - HYPERTENSION [None]
